FAERS Safety Report 20512509 (Version 1)
Quarter: 2022Q1

REPORT INFORMATION
  Report Type: Spontaneous
  Country: CN (occurrence: CN)
  Receive Date: 20220224
  Receipt Date: 20220224
  Transmission Date: 20220424
  Serious: Yes (Other)
  Sender: FDA-Public Use
  Company Number: CN-PFIZER INC-202200284769

PATIENT
  Age: 27 Year
  Sex: Male
  Weight: 76 kg

DRUGS (1)
  1. METHOTREXATE [Suspect]
     Active Substance: METHOTREXATE
     Indication: Acute leukaemia
     Dosage: 5000 MG, 1X/DAY
     Route: 041
     Dates: start: 20220106, end: 20220108

REACTIONS (1)
  - Mouth injury [Recovering/Resolving]

NARRATIVE: CASE EVENT DATE: 20220113
